FAERS Safety Report 5254894-0 (Version None)
Quarter: 2007Q1

REPORT INFORMATION
  Report Type: 
  Country: None (occurrence: None)
  Receive Date: 20070305
  Receipt Date: 20070221
  Transmission Date: 20070707
  Serious: Yes (Other)
  Sender: FDA-Public Use
  Company Number: PHNU2007DE00955

PATIENT
  Sex: Female

DRUGS (2)
  1. AREDIA [Suspect]
     Indication: METASTASES TO BONE
     Dosage: 1 DF, ONCE/SINGLE
     Route: 042
     Dates: start: 20070212, end: 20070212
  2. ZOMETA [Suspect]
     Indication: METASTASES TO BONE
     Route: 042
     Dates: start: 20050601, end: 20050601

REACTIONS (2)
  - MUSCLE SPASMS [None]
  - THROMBOSIS [None]
